FAERS Safety Report 4467333-4 (Version None)
Quarter: 2004Q4

REPORT INFORMATION
  Report Type: 
  Country: None (occurrence: None)
  Receive Date: 20041004
  Receipt Date: 20040922
  Transmission Date: 20050328
  Serious: Yes (Hospitalization)
  Sender: FDA-Public Use
  Company Number: 2004230888US

PATIENT
  Sex: Female

DRUGS (4)
  1. ELLENCE [Suspect]
     Indication: BREAST CANCER
     Dosage: 75 MG/M2, CYCLIC, IV
     Route: 042
     Dates: start: 20040623, end: 20040623
  2. COMPARATOR-DOCETAXEL (DOCETAXEL) INJECTION [Suspect]
     Indication: BREAST CANCER
     Dosage: 75 MG, CYCLIC, IV
     Route: 042
     Dates: start: 20040623, end: 20040623
  3. ZOMETA [Suspect]
     Indication: BREAST CANCER
     Dosage: 4 MG, IV
     Route: 042
     Dates: start: 20040623, end: 20040623
  4. NEULASTA [Concomitant]

REACTIONS (3)
  - COLITIS [None]
  - DRUG INEFFECTIVE [None]
  - FEBRILE NEUTROPENIA [None]
